FAERS Safety Report 7253677-X (Version None)
Quarter: 2011Q1

REPORT INFORMATION
  Report Type: 
  Country: None (occurrence: None)
  Receive Date: 20110129
  Receipt Date: 20100201
  Transmission Date: 20110831
  Serious: No
  Sender: FDA-Public Use
  Company Number: US-ABBOTT-10P-163-0623243-00

PATIENT
  Sex: Female

DRUGS (2)
  1. HUMIRA [Suspect]
  2. HUMIRA [Suspect]
     Indication: PSORIASIS
     Dates: start: 20080801

REACTIONS (5)
  - NASAL DISCOMFORT [None]
  - PULMONARY CONGESTION [None]
  - RHINORRHOEA [None]
  - SINUS DISORDER [None]
  - PRECANCEROUS SKIN LESION [None]
